FAERS Safety Report 4835636-7 (Version None)
Quarter: 2005Q4

REPORT INFORMATION
  Report Type: 
  Country: None (occurrence: None)
  Receive Date: 20051123
  Receipt Date: 20051118
  Transmission Date: 20060501
  Serious: Yes (Other)
  Sender: FDA-Public Use
  Company Number: 2005UW17574

PATIENT
  Sex: Male

DRUGS (4)
  1. TOPROL-XL [Suspect]
     Route: 048
  2. TOPROL-XL [Suspect]
     Route: 048
  3. COZAAR [Concomitant]
  4. LIPITOR [Concomitant]

REACTIONS (3)
  - BACK PAIN [None]
  - DEEP VEIN THROMBOSIS [None]
  - PERIPHERAL COLDNESS [None]
